FAERS Safety Report 14573442 (Version 1)
Quarter: 2018Q1

REPORT INFORMATION
  Report Type: Report from Study
  Country: US (occurrence: US)
  Receive Date: 20180226
  Receipt Date: 20180226
  Transmission Date: 20180509
  Serious: Yes (Other)
  Sender: FDA-Public Use
  Company Number: US-JAZZ-2017-US-006106

PATIENT
  Sex: Female

DRUGS (26)
  1. FISH OIL OMEGA 3 [Concomitant]
     Active Substance: FISH OIL
  2. ABILIFY [Concomitant]
     Active Substance: ARIPIPRAZOLE
  3. NEURONTIN [Concomitant]
     Active Substance: GABAPENTIN
  4. XYREM [Suspect]
     Active Substance: SODIUM OXYBATE
     Dosage: DOSE ADJUSTMENT
     Route: 048
     Dates: start: 200609, end: 201505
  5. LOVASTATIN. [Concomitant]
     Active Substance: LOVASTATIN
  6. VERAPAMIL [Concomitant]
     Active Substance: VERAPAMIL HYDROCHLORIDE
  7. XYREM [Suspect]
     Active Substance: SODIUM OXYBATE
     Indication: NARCOLEPSY
     Dosage: 2.25 G, BID
     Route: 048
     Dates: start: 200609, end: 200609
  8. METFORMIN HCL [Concomitant]
     Active Substance: METFORMIN HYDROCHLORIDE
  9. LEVOTHYROXINE. [Concomitant]
     Active Substance: LEVOTHYROXINE
  10. TRILIPIX [Concomitant]
     Active Substance: FENOFIBRIC ACID
  11. ADDERALL [Concomitant]
     Active Substance: AMPHETAMINE ASPARTATE\AMPHETAMINE SULFATE\DEXTROAMPHETAMINE SACCHARATE\DEXTROAMPHETAMINE SULFATE
  12. LITHIUM CARBONATE. [Concomitant]
     Active Substance: LITHIUM CARBONATE
  13. IBUPROFEN SODIUM. [Concomitant]
     Active Substance: IBUPROFEN SODIUM
  14. ORTHO EVRA [Concomitant]
     Active Substance: ETHINYL ESTRADIOL\NORELGESTROMIN
  15. PROMETHAZINE [Concomitant]
     Active Substance: PROMETHAZINE\PROMETHAZINE HYDROCHLORIDE
  16. JANUVIA [Concomitant]
     Active Substance: SITAGLIPTIN PHOSPHATE
  17. BENAZEPRIL HCL [Concomitant]
     Active Substance: BENAZEPRIL HYDROCHLORIDE
  18. STARLIX [Concomitant]
     Active Substance: NATEGLINIDE
  19. XYREM [Suspect]
     Active Substance: SODIUM OXYBATE
     Dosage: 4.5 G, BID
     Route: 048
     Dates: start: 201505
  20. ASPIRIN 81 [Concomitant]
     Active Substance: ASPIRIN
  21. AMBIEN [Concomitant]
     Active Substance: ZOLPIDEM TARTRATE
  22. CITALOPRAM HYDROBROMIDE. [Concomitant]
     Active Substance: CITALOPRAM HYDROBROMIDE
  23. LAMICTAL [Concomitant]
     Active Substance: LAMOTRIGINE
  24. NORCO [Concomitant]
     Active Substance: ACETAMINOPHEN\HYDROCODONE BITARTRATE
  25. METAGLIP [Concomitant]
     Active Substance: GLIPIZIDE\METFORMIN HYDROCHLORIDE
  26. GLIPIZIDE. [Concomitant]
     Active Substance: GLIPIZIDE

REACTIONS (2)
  - Glycosylated haemoglobin increased [Unknown]
  - Diabetes mellitus [Recovering/Resolving]
